FAERS Safety Report 9880550 (Version 5)
Quarter: 2014Q2

REPORT INFORMATION
  Report Type: Report from Study
  Country: US (occurrence: US)
  Receive Date: 20140207
  Receipt Date: 20140404
  Transmission Date: 20141212
  Serious: Yes (Hospitalization)
  Sender: FDA-Public Use
  Company Number: US-JNJFOC-20140202305

PATIENT
  Age: 18 Year
  Sex: Female
  Weight: 66.4 kg

DRUGS (5)
  1. REMICADE [Suspect]
     Indication: COLITIS ULCERATIVE
     Route: 042
     Dates: start: 20110317, end: 20130418
  2. HUMIRA [Suspect]
     Indication: COLITIS ULCERATIVE
     Route: 065
     Dates: start: 20130418
  3. OMEPRAZOLE [Suspect]
     Indication: PRODUCT USED FOR UNKNOWN INDICATION
     Route: 065
  4. 5-ASA [Concomitant]
     Route: 048
  5. VITAMIN D [Concomitant]
     Route: 065

REACTIONS (1)
  - Clostridium difficile infection [Recovered/Resolved]
